FAERS Safety Report 17242379 (Version 1)
Quarter: 2020Q1

REPORT INFORMATION
  Report Type: Spontaneous
  Country: AF (occurrence: AF)
  Receive Date: 20200106
  Receipt Date: 20200106
  Transmission Date: 20200409
  Serious: No
  Sender: FDA-Public Use
  Company Number: None

PATIENT
  Age: 70 Year
  Sex: Female
  Weight: 76.5 kg

DRUGS (20)
  1. FENTANYL TRANSDERMAL SYSTEM [Concomitant]
     Active Substance: FENTANYL
  2. CITALOPRAM [Concomitant]
     Active Substance: CITALOPRAM HYDROBROMIDE
  3. RANITIDINE. [Concomitant]
     Active Substance: RANITIDINE
  4. LANTUS SOLOSTAR [Concomitant]
     Active Substance: INSULIN GLARGINE
  5. ZYXAL [Concomitant]
  6. MEGA RED KRILL OIL [Concomitant]
  7. JANUVIA [Concomitant]
     Active Substance: SITAGLIPTIN PHOSPHATE
  8. CALCIUM CITRATE [Concomitant]
     Active Substance: CALCIUM CITRATE
  9. ASPIRIN. [Concomitant]
     Active Substance: ASPIRIN
  10. QUNOL CO-Q-10 [Concomitant]
  11. TIZANIDINE. [Concomitant]
     Active Substance: TIZANIDINE
  12. TIZANIDINE. [Concomitant]
     Active Substance: TIZANIDINE
  13. MUCINEX [Concomitant]
     Active Substance: GUAIFENESIN
  14. ROSUVASTATIN SOL DR [Concomitant]
  15. OMEPRAZOLE. [Concomitant]
     Active Substance: OMEPRAZOLE
  16. MULTIVITAMIN [Concomitant]
     Active Substance: VITAMINS
  17. GABIPENTIN [Concomitant]
  18. DICLOFENAC [Concomitant]
     Active Substance: DICLOFENAC
  19. FENTANYL TRANSDERMAL SYSTEM [Suspect]
     Active Substance: FENTANYL
     Indication: ARTHRALGIA
     Dosage: ?          QUANTITY:1 PATCH(ES);OTHER FREQUENCY:Q 3 DAYS;?
     Route: 062
     Dates: start: 20191109, end: 20200106
  20. VIT, D-3 [Concomitant]

REACTIONS (5)
  - Product adhesion issue [None]
  - Rash [None]
  - Adhesive tape use [None]
  - Pain of skin [None]
  - Drug ineffective [None]

NARRATIVE: CASE EVENT DATE: 20200105
